FAERS Safety Report 18736066 (Version 1)
Quarter: 2021Q1

REPORT INFORMATION
  Report Type: Spontaneous
  Country: US (occurrence: US)
  Receive Date: 20210113
  Receipt Date: 20210113
  Transmission Date: 20210419
  Serious: No
  Sender: FDA-Public Use
  Company Number: US-PFIZER INC-2021015867

PATIENT
  Age: 39 Year
  Sex: Female

DRUGS (2)
  1. ERYTHROMYCIN. [Suspect]
     Active Substance: ERYTHROMYCIN
     Dosage: UNK
  2. PAVULON [Suspect]
     Active Substance: PANCURONIUM BROMIDE
     Dosage: UNK

REACTIONS (1)
  - Drug hypersensitivity [Unknown]
